FAERS Safety Report 14759485 (Version 2)
Quarter: 2018Q4

REPORT INFORMATION
  Report Type: Spontaneous
  Country: IT (occurrence: IT)
  Receive Date: 20180413
  Receipt Date: 20181010
  Transmission Date: 20190204
  Serious: Yes (Other)
  Sender: FDA-Public Use
  Company Number: IT-DUCHESNAY INC.-2045747

PATIENT
  Age: 58 Year
  Sex: Female

DRUGS (1)
  1. OSPHENA [Suspect]
     Active Substance: OSPEMIFENE
     Indication: VULVOVAGINAL DRYNESS

REACTIONS (5)
  - Endometrial thickening [Unknown]
  - Vaginal haemorrhage [Unknown]
  - Vaginal discharge [Unknown]
  - Endometrial adenocarcinoma [Unknown]
  - Drug ineffective [Unknown]
